FAERS Safety Report 15375068 (Version 1)
Quarter: 2018Q3

REPORT INFORMATION
  Report Type: Spontaneous
  Country: US (occurrence: US)
  Receive Date: 20180906
  Receipt Date: 20180906
  Transmission Date: 20181010
  Serious: Yes (Death)
  Sender: FDA-Public Use
  Company Number: None

PATIENT
  Age: 76 Year
  Sex: Female
  Weight: 87.3 kg

DRUGS (10)
  1. PANTOPRAZOLE [Concomitant]
     Active Substance: PANTOPRAZOLE
  2. MAGNESIUM OXIDE. [Concomitant]
     Active Substance: MAGNESIUM OXIDE
  3. BUMEX [Concomitant]
     Active Substance: BUMETANIDE
  4. METOPROLOL. [Concomitant]
     Active Substance: METOPROLOL
  5. SPIRONOLACTONE. [Concomitant]
     Active Substance: SPIRONOLACTONE
  6. VITAMIN D [Concomitant]
     Active Substance: CHOLECALCIFEROL
  7. ASPIRIN. [Concomitant]
     Active Substance: ASPIRIN
  8. KISQALI [Suspect]
     Active Substance: RIBOCICLIB
     Indication: BREAST CANCER
     Route: 048
     Dates: start: 20180613, end: 20180831
  9. LETROZOLE. [Concomitant]
     Active Substance: LETROZOLE
  10. DOCUSATE SODIUM. [Concomitant]
     Active Substance: DOCUSATE SODIUM

REACTIONS (1)
  - Disease progression [None]

NARRATIVE: CASE EVENT DATE: 20180901
